FAERS Safety Report 8518153-2 (Version None)
Quarter: 2012Q3

REPORT INFORMATION
  Report Type: 
  Country: None (occurrence: None)
  Receive Date: 20120712
  Receipt Date: 20120712
  Transmission Date: 20120928
  Serious: Yes (Hospitalization)
  Sender: FDA-Public Use
  Company Number: None

PATIENT
  Age: 52 Year
  Sex: Female

DRUGS (14)
  1. REVLIMID [Suspect]
     Indication: AMYLOIDOSIS
     Dosage: 10 MG DAILY X 21/28 DAYS BY MOUTH
     Route: 048
     Dates: start: 20120101
  2. SIMVASTATIN [Concomitant]
  3. TOLAZAMIDE [Concomitant]
  4. OXYCODONE HCL [Concomitant]
  5. VIAGRA [Concomitant]
  6. BECLOMETHASONE DIPROPIONATE [Concomitant]
  7. TRAZODONE HYDROCHLORIDE [Concomitant]
  8. BUMETANIDE [Concomitant]
  9. DEXAMETHASONE [Concomitant]
  10. FAMOTIDINE [Concomitant]
  11. CETIRIZINE HCL [Concomitant]
  12. DOCUSATE SODIUM [Concomitant]
  13. LEVOTHYROXINE SODIUM [Concomitant]
  14. ALBUTEROL [Concomitant]

REACTIONS (3)
  - PANCYTOPENIA [None]
  - ENDOCARDITIS [None]
  - STAPHYLOCOCCAL INFECTION [None]
